FAERS Safety Report 11133472 (Version 2)
Quarter: 2015Q4

REPORT INFORMATION
  Report Type: Spontaneous
  Country: US (occurrence: US)
  Receive Date: 20150522
  Receipt Date: 20151027
  Transmission Date: 20160304
  Serious: Yes (Life-Threatening, Hospitalization)
  Sender: FDA-Public Use
  Company Number: US-ASTRAZENECA-2015SE45558

PATIENT
  Age: 970 Day
  Sex: Male
  Weight: 11.3 kg

DRUGS (4)
  1. SYNAGIS [Suspect]
     Active Substance: PALIVIZUMAB
     Indication: PREMATURE BABY
     Dosage: MONTHLY
     Route: 030
     Dates: start: 201310, end: 201403
  2. OMEPRAZOLE. [Concomitant]
     Active Substance: OMEPRAZOLE
     Indication: GASTROOESOPHAGEAL REFLUX DISEASE
  3. TAGAMET [Concomitant]
     Active Substance: CIMETIDINE
  4. SYNAGIS [Suspect]
     Active Substance: PALIVIZUMAB
     Indication: PREMATURE BABY
     Dosage: MONTHLY
     Route: 030
     Dates: start: 201302, end: 201303

REACTIONS (3)
  - Pneumonia [Recovered/Resolved]
  - Gastrooesophageal reflux disease [Unknown]
  - Respiratory syncytial virus bronchiolitis [Recovered/Resolved]

NARRATIVE: CASE EVENT DATE: 20150413
